FAERS Safety Report 16029238 (Version 1)
Quarter: 2019Q1

REPORT INFORMATION
  Report Type: Spontaneous
  Country: US (occurrence: US)
  Receive Date: 20190204
  Receipt Date: 20190204
  Transmission Date: 20190418
  Serious: No
  Sender: FDA-Public Use
  Company Number: None

PATIENT
  Sex: Female

DRUGS (1)
  1. ENBREL [Suspect]
     Active Substance: ETANERCEPT
     Indication: RADICULOPATHY
     Route: 058
     Dates: start: 201811

REACTIONS (3)
  - Tinnitus [None]
  - Dyspepsia [None]
  - Nausea [None]
